FAERS Safety Report 20825517 (Version 5)
Quarter: 2024Q2

REPORT INFORMATION
  Report Type: Spontaneous
  Country: US (occurrence: US)
  Receive Date: 20220513
  Receipt Date: 20240410
  Transmission Date: 20240716
  Serious: No
  Sender: FDA-Public Use
  Company Number: US-BIOGEN-2022BI01089122

PATIENT
  Sex: Female

DRUGS (1)
  1. TYSABRI [Suspect]
     Active Substance: NATALIZUMAB
     Indication: Multiple sclerosis
     Route: 050
     Dates: start: 20110812

REACTIONS (14)
  - Poor venous access [Unknown]
  - Vein collapse [Unknown]
  - Muscle tightness [Unknown]
  - Lung disorder [Unknown]
  - Infusion site bruising [Unknown]
  - Vein disorder [Unknown]
  - Stress [Unknown]
  - Feeling hot [Unknown]
  - Migraine [Unknown]
  - Hypotension [Unknown]
  - Balance disorder [Unknown]
  - Myalgia [Unknown]
  - Dyspnoea [Unknown]
  - Dizziness [Unknown]
